FAERS Safety Report 9440285 (Version 1)
Quarter: 2013Q3

REPORT INFORMATION
  Report Type: Spontaneous
  Country: IT (occurrence: IT)
  Receive Date: 20130805
  Receipt Date: 20130805
  Transmission Date: 20140515
  Serious: Yes (Death)
  Sender: FDA-Public Use
  Company Number: PHHY2013IT083013

PATIENT
  Sex: Male

DRUGS (3)
  1. GLIVEC [Suspect]
     Indication: CHRONIC MYELOID LEUKAEMIA
     Dosage: 400 MG, DAILY
     Route: 048
     Dates: start: 20130228, end: 20130618
  2. TICLOPIDINA [Concomitant]
     Indication: TRANSIENT ISCHAEMIC ATTACK
     Dosage: 500 MG, UNK
     Route: 048
  3. HUMULIN [Concomitant]
     Indication: TYPE 2 DIABETES MELLITUS
     Dosage: 30 DF, UNK
     Route: 058

REACTIONS (5)
  - Nausea [Fatal]
  - Decreased appetite [Fatal]
  - Hepatitis acute [Fatal]
  - Jaundice [Fatal]
  - Hypertransaminasaemia [Fatal]
